FAERS Safety Report 8993096 (Version 1)
Quarter: 2013Q1

REPORT INFORMATION
  Report Type: Spontaneous
  Country: FR (occurrence: FR)
  Receive Date: 20130102
  Receipt Date: 20130102
  Transmission Date: 20140127
  Serious: Yes (Hospitalization)
  Sender: FDA-Public Use
  Company Number: FR-ASTRAZENECA-2012SE95474

PATIENT
  Age: 19537 Day
  Sex: Male

DRUGS (3)
  1. INEXIUM [Suspect]
     Dosage: DAILY
     Route: 048
     Dates: end: 20121031
  2. ARAVA [Suspect]
     Indication: RHEUMATOID ARTHRITIS
     Route: 065
     Dates: start: 20120123, end: 20121031
  3. APRANAX [Suspect]
     Indication: RHEUMATOID ARTHRITIS
     Route: 048
     Dates: end: 20121031

REACTIONS (6)
  - Pyrexia [Unknown]
  - Abdominal pain [Unknown]
  - Cholestasis [Unknown]
  - Jaundice [Unknown]
  - Vomiting [Unknown]
  - Splenomegaly [Unknown]
